FAERS Safety Report 21943775 (Version 1)
Quarter: 2023Q1

REPORT INFORMATION
  Report Type: Report from Study
  Country: US (occurrence: US)
  Receive Date: 20230202
  Receipt Date: 20230202
  Transmission Date: 20230418
  Serious: Yes (Death)
  Sender: FDA-Public Use
  Company Number: US-ABBVIE-4292334

PATIENT
  Sex: Male

DRUGS (1)
  1. VENCLEXTA [Suspect]
     Active Substance: VENETOCLAX
     Indication: Mantle cell lymphoma
     Dosage: TWO 10MG, TABS X7DAYS, ONE 50MG TAB X7DAYS,ONE 100MG TAB X7DAYS,THEN TWO 100MG TABS X7DAYS WITH W...
     Route: 048

REACTIONS (1)
  - Death [Fatal]
